FAERS Safety Report 5350767-3 (Version None)
Quarter: 2007Q2

REPORT INFORMATION
  Report Type: 
  Country: None (occurrence: None)
  Receive Date: 20070608
  Receipt Date: 20070528
  Transmission Date: 20071010
  Serious: Yes (Life-Threatening)
  Sender: FDA-Public Use
  Company Number: JP-ROCHE-499051

PATIENT
  Age: 80 Year
  Sex: Female
  Weight: 48 kg

DRUGS (13)
  1. ROCEPHIN [Suspect]
     Route: 041
     Dates: start: 20070425, end: 20070425
  2. ROCEPHIN [Suspect]
     Route: 041
     Dates: start: 20070428, end: 20070501
  3. ROCEPHIN [Suspect]
     Route: 041
     Dates: start: 20070515, end: 20070515
  4. AMLODIN [Concomitant]
     Dosage: GENERIC REPORTED AS AMLODIPINE BESILATE.
     Route: 048
  5. BLOPRESS [Concomitant]
     Dosage: GENERIC REPORTED ASJ CANDESARTAN CILEXETIL.
     Route: 048
  6. SULPERAZON [Concomitant]
     Route: 041
     Dates: start: 20070502, end: 20070506
  7. LEVOFLOXACIN [Concomitant]
     Route: 048
     Dates: start: 20070502, end: 20070506
  8. LOXONIN [Concomitant]
     Route: 048
     Dates: start: 20070503, end: 20070505
  9. CYTOTEC [Concomitant]
     Route: 048
     Dates: start: 20070503, end: 20070505
  10. PENTCILLIN [Concomitant]
     Route: 041
     Dates: start: 20070508, end: 20070511
  11. PREDONINE [Concomitant]
     Route: 048
     Dates: start: 20070511, end: 20070514
  12. VITAMEDIN [Concomitant]
     Route: 041
     Dates: start: 20070515, end: 20070524
  13. PREDONINE [Concomitant]
     Dosage: ON 21 MAY 2007, THE DOSAGE REGIMEN WAS REDUCE FROM 20 MG TO 10 MG.
     Route: 041
     Dates: start: 20070518, end: 20070524

REACTIONS (1)
  - ERYTHEMA MULTIFORME [None]
